FAERS Safety Report 13942362 (Version 4)
Quarter: 2025Q2

REPORT INFORMATION
  Report Type: Spontaneous
  Country: PT (occurrence: PT)
  Receive Date: 20170906
  Receipt Date: 20250415
  Transmission Date: 20250716
  Serious: Yes (Life-Threatening, Hospitalization, Other)
  Sender: MYLAN
  Company Number: PT-MYLANLABS-2017M1055036

PATIENT
  Age: 70 Year
  Sex: Female

DRUGS (48)
  1. VENLAFAXINE [Suspect]
     Active Substance: VENLAFAXINE HYDROCHLORIDE
     Indication: Overdose
  2. VENLAFAXINE [Suspect]
     Active Substance: VENLAFAXINE HYDROCHLORIDE
     Route: 065
  3. VENLAFAXINE [Suspect]
     Active Substance: VENLAFAXINE HYDROCHLORIDE
     Route: 065
  4. VENLAFAXINE [Suspect]
     Active Substance: VENLAFAXINE HYDROCHLORIDE
  5. DULOXETINE [Suspect]
     Active Substance: DULOXETINE
     Indication: Overdose
  6. DULOXETINE [Suspect]
     Active Substance: DULOXETINE
     Route: 065
  7. DULOXETINE [Suspect]
     Active Substance: DULOXETINE
     Route: 065
  8. DULOXETINE [Suspect]
     Active Substance: DULOXETINE
  9. DIAZEPAM [Suspect]
     Active Substance: DIAZEPAM
     Indication: Depression
  10. DIAZEPAM [Suspect]
     Active Substance: DIAZEPAM
     Indication: Overdose
     Route: 065
  11. DIAZEPAM [Suspect]
     Active Substance: DIAZEPAM
     Route: 065
  12. DIAZEPAM [Suspect]
     Active Substance: DIAZEPAM
  13. LORAZEPAM [Suspect]
     Active Substance: LORAZEPAM
     Indication: Depression
  14. LORAZEPAM [Suspect]
     Active Substance: LORAZEPAM
     Indication: Overdose
     Route: 065
  15. LORAZEPAM [Suspect]
     Active Substance: LORAZEPAM
     Route: 065
  16. LORAZEPAM [Suspect]
     Active Substance: LORAZEPAM
  17. CLOMIPRAMINE [Suspect]
     Active Substance: CLOMIPRAMINE
     Indication: Depression
  18. CLOMIPRAMINE [Suspect]
     Active Substance: CLOMIPRAMINE
     Indication: Overdose
     Route: 065
  19. CLOMIPRAMINE [Suspect]
     Active Substance: CLOMIPRAMINE
     Route: 065
  20. CLOMIPRAMINE [Suspect]
     Active Substance: CLOMIPRAMINE
  21. BROMAZEPAM [Suspect]
     Active Substance: BROMAZEPAM
     Indication: Depression
  22. BROMAZEPAM [Suspect]
     Active Substance: BROMAZEPAM
     Indication: Overdose
     Route: 065
  23. BROMAZEPAM [Suspect]
     Active Substance: BROMAZEPAM
     Route: 065
  24. BROMAZEPAM [Suspect]
     Active Substance: BROMAZEPAM
  25. VALPROIC ACID [Concomitant]
     Active Substance: VALPROIC ACID
     Indication: Overdose
  26. VALPROIC ACID [Concomitant]
     Active Substance: VALPROIC ACID
     Route: 065
  27. VALPROIC ACID [Concomitant]
     Active Substance: VALPROIC ACID
     Route: 065
  28. VALPROIC ACID [Concomitant]
     Active Substance: VALPROIC ACID
  29. TRIHEXYPHENIDYL [Concomitant]
     Active Substance: TRIHEXYPHENIDYL
     Indication: Overdose
  30. TRIHEXYPHENIDYL [Concomitant]
     Active Substance: TRIHEXYPHENIDYL
     Route: 065
  31. TRIHEXYPHENIDYL [Concomitant]
     Active Substance: TRIHEXYPHENIDYL
     Route: 065
  32. TRIHEXYPHENIDYL [Concomitant]
     Active Substance: TRIHEXYPHENIDYL
  33. LEVOTHYROXINE SODIUM [Concomitant]
     Active Substance: LEVOTHYROXINE SODIUM
     Indication: Product used for unknown indication
  34. LEVOTHYROXINE SODIUM [Concomitant]
     Active Substance: LEVOTHYROXINE SODIUM
     Route: 065
  35. LEVOTHYROXINE SODIUM [Concomitant]
     Active Substance: LEVOTHYROXINE SODIUM
     Route: 065
  36. LEVOTHYROXINE SODIUM [Concomitant]
     Active Substance: LEVOTHYROXINE SODIUM
  37. SIMVASTATIN [Concomitant]
     Active Substance: SIMVASTATIN
     Indication: Product used for unknown indication
  38. SIMVASTATIN [Concomitant]
     Active Substance: SIMVASTATIN
     Route: 065
  39. SIMVASTATIN [Concomitant]
     Active Substance: SIMVASTATIN
     Route: 065
  40. SIMVASTATIN [Concomitant]
     Active Substance: SIMVASTATIN
  41. IDEBENONE [Concomitant]
     Active Substance: IDEBENONE
     Indication: Product used for unknown indication
  42. IDEBENONE [Concomitant]
     Active Substance: IDEBENONE
     Route: 065
  43. IDEBENONE [Concomitant]
     Active Substance: IDEBENONE
     Route: 065
  44. IDEBENONE [Concomitant]
     Active Substance: IDEBENONE
  45. CLOPIDOGREL [Concomitant]
     Active Substance: CLOPIDOGREL BISULFATE
     Indication: Product used for unknown indication
  46. CLOPIDOGREL [Concomitant]
     Active Substance: CLOPIDOGREL BISULFATE
     Route: 065
  47. CLOPIDOGREL [Concomitant]
     Active Substance: CLOPIDOGREL BISULFATE
     Route: 065
  48. CLOPIDOGREL [Concomitant]
     Active Substance: CLOPIDOGREL BISULFATE

REACTIONS (8)
  - Respiratory depression [Recovered/Resolved]
  - Acute kidney injury [Unknown]
  - Hypernatraemia [Unknown]
  - Hyperchloraemia [Unknown]
  - Drug screen false positive [Unknown]
  - Toxicity to various agents [Unknown]
  - Coma [Recovered/Resolved]
  - Overdose [Unknown]
